FAERS Safety Report 8691724 (Version 2)
Quarter: 2012Q4

REPORT INFORMATION
  Report Type: 
  Country: US (occurrence: US)
  Receive Date: 20120730
  Receipt Date: 20120903
  Transmission Date: 20130627
  Serious: Yes (Other)
  Sender: FDA-Public Use
  Company Number: US-PFIZER INC-2012182884

PATIENT
  Age: 55 Year
  Sex: Male
  Weight: 70.2 kg

DRUGS (9)
  1. SUTENT [Suspect]
     Indication: GASTROINTESTINAL STROMAL TUMOUR
     Dosage: 37.5 mg (25mg and a 12.5mg capsule), 1x/day
     Route: 048
     Dates: start: 20120314, end: 20120718
  2. PRILOSEC [Concomitant]
     Indication: GASTROOESOPHAGEAL REFLUX DISEASE
     Dosage: 20 mg, 1x/day, CAPDR
     Route: 048
  3. PHENERGAN [Concomitant]
     Indication: NAUSEA
     Dosage: 25 mg, tabs 4 HRS PRN
     Route: 048
  4. HYDROMORPHONE HYDROCHLORIDE [Concomitant]
     Dosage: 2 mg, one tab every 8hrs as needed
  5. ZOFRAN [Concomitant]
     Indication: NAUSEA
     Dosage: 8 mg, TABDISP, Q 8 hrs
     Route: 048
  6. LOMOTIL [Concomitant]
     Indication: DIARRHOEA
     Dosage: 2.5-0.025 MG TABS 1-2 po q2-4 hours
     Route: 048
  7. ULTRAM [Concomitant]
     Indication: PAIN
     Dosage: 50 mg, Q 6 hours prn
     Route: 048
  8. PREDNISONE [Concomitant]
     Dosage: 50 mg, 1 tab by mouth 13hrs, 7hrs, and 1 hr prior to CT
     Route: 048
  9. HALOPERIDOL [Concomitant]
     Dosage: 2 mg, TAB

REACTIONS (2)
  - Volvulus [Recovered/Resolved]
  - Weight decreased [Unknown]
